FAERS Safety Report 8410449-8 (Version None)
Quarter: 2012Q2

REPORT INFORMATION
  Report Type: 
  Country: None (occurrence: None)
  Receive Date: 20120529
  Receipt Date: 20001130
  Transmission Date: 20120825
  Serious: Yes (Death, Other)
  Sender: FDA-Public Use
  Company Number: 02100-USA-00-0340

PATIENT
  Sex: Male

DRUGS (2)
  1. PLETAL [Suspect]
     Dosage: 100 MG, BID,ORAL
     Route: 048
  2. COUMADIN [Concomitant]

REACTIONS (2)
  - PROTHROMBIN TIME PROLONGED [None]
  - GASTROINTESTINAL HAEMORRHAGE [None]
